FAERS Safety Report 19859523 (Version 1)
Quarter: 2021Q3

REPORT INFORMATION
  Report Type: Spontaneous
  Country: US (occurrence: US)
  Receive Date: 20210920
  Receipt Date: 20210920
  Transmission Date: 20211014
  Serious: No
  Sender: FDA-Public Use
  Company Number: None

PATIENT
  Age: 38 Year
  Sex: Female
  Weight: 54 kg

DRUGS (1)
  1. BITES DELTA?8 THC PINK LEMONADE GUMMIS [Suspect]
     Active Substance: .DELTA.8-TETRAHYDROCANNABINOL\HERBALS
     Indication: ANXIETY
     Dosage: ?          QUANTITY:1 TABLET(S);OTHER FREQUENCY:NOT TO EXCEED 1?2;?
     Route: 048
     Dates: start: 20210622, end: 20210623

REACTIONS (4)
  - Tremor [None]
  - Vomiting [None]
  - Vertigo [None]
  - Feeling hot [None]

NARRATIVE: CASE EVENT DATE: 20210622
